FAERS Safety Report 24968601 (Version 2)
Quarter: 2025Q1

REPORT INFORMATION
  Report Type: Report from Study
  Country: DE (occurrence: DE)
  Receive Date: 20250214
  Receipt Date: 20250225
  Transmission Date: 20250409
  Serious: Yes (Death)
  Sender: KARYOPHARM THERAPEUTICS
  Company Number: DE-KARYOPHARM-2025KPT000148

PATIENT
  Sex: Male
  Weight: 77 kg

DRUGS (25)
  1. SELINEXOR [Suspect]
     Active Substance: SELINEXOR
     Indication: Plasma cell myeloma
     Route: 048
     Dates: start: 20241127, end: 20241204
  2. BORTEZOMIB [Suspect]
     Active Substance: BORTEZOMIB
     Indication: Plasma cell myeloma
     Route: 058
     Dates: start: 20241127, end: 20241204
  3. DEXAMETHASONE [Suspect]
     Active Substance: DEXAMETHASONE
     Indication: Plasma cell myeloma
     Route: 048
     Dates: start: 20241127, end: 20241205
  4. COTRIMOXAZOLE [Concomitant]
     Active Substance: SULFAMETHOXAZOLE\TRIMETHOPRIM
  5. ACYCLOVIR [Concomitant]
     Active Substance: ACYCLOVIR
  6. CHOLECALCIFEROL [Concomitant]
     Active Substance: CHOLECALCIFEROL
  7. IMIPRAMIN [IMIPRAMINE] [Concomitant]
  8. OLANZAPINE [Concomitant]
     Active Substance: OLANZAPINE
  9. METAMIZOL [Concomitant]
     Active Substance: METAMIZOLE SODIUM
  10. PANTOPRAZOLE [Concomitant]
     Active Substance: PANTOPRAZOLE
  11. CICLOPIROX [Concomitant]
     Active Substance: CICLOPIROX
  12. POMALIDOMIDE [Concomitant]
     Active Substance: POMALIDOMIDE
  13. DEXAMETHASONE [Concomitant]
     Active Substance: DEXAMETHASONE
  14. ENOXAPARIN SODIUM [Concomitant]
     Active Substance: ENOXAPARIN SODIUM
  15. GRANISETRON [Concomitant]
     Active Substance: GRANISETRON
  16. APREPITANT [Concomitant]
     Active Substance: APREPITANT
  17. SODIUM PICOSULFATE [Concomitant]
     Active Substance: SODIUM PICOSULFATE
  18. LACTULOSE [Concomitant]
     Active Substance: LACTULOSE
  19. MAGNESIUM OXIDE [Concomitant]
     Active Substance: MAGNESIUM OXIDE
  20. TAMSULOSIN [Concomitant]
     Active Substance: TAMSULOSIN
  21. ACETAMINOPHEN [Concomitant]
     Active Substance: ACETAMINOPHEN
  22. CLEMASTINE [Concomitant]
     Active Substance: CLEMASTINE
  23. NALOXEGOL [Concomitant]
     Active Substance: NALOXEGOL
  24. BISACODYL [Concomitant]
     Active Substance: BISACODYL
  25. CORIANDER OIL [Concomitant]
     Active Substance: CORIANDER OIL

REACTIONS (1)
  - Malignant neoplasm progression [Fatal]
